FAERS Safety Report 25404730 (Version 3)
Quarter: 2025Q3

REPORT INFORMATION
  Report Type: Spontaneous
  Country: US (occurrence: US)
  Receive Date: 20250606
  Receipt Date: 20250821
  Transmission Date: 20251020
  Serious: No
  Sender: SUNOVION
  Company Number: US-SMPA-2025SPA006737AA

PATIENT
  Sex: Male

DRUGS (1)
  1. ORGOVYX [Suspect]
     Active Substance: RELUGOLIX
     Indication: Product used for unknown indication
     Route: 048

REACTIONS (15)
  - Pyrexia [Unknown]
  - Chills [Unknown]
  - Pain [Unknown]
  - Gait disturbance [Unknown]
  - Drug hypersensitivity [Unknown]
  - Cold sweat [Unknown]
  - Chest discomfort [Unknown]
  - Decreased appetite [Unknown]
  - Cough [Unknown]
  - Quality of life decreased [Unknown]
  - Mobility decreased [Unknown]
  - Depressed mood [Unknown]
  - Arthralgia [Unknown]
  - Hot flush [Unknown]
  - Myalgia [Recovering/Resolving]
